FAERS Safety Report 6074631-X (Version None)
Quarter: 2009Q1

REPORT INFORMATION
  Report Type: 
  Country: None (occurrence: None)
  Receive Date: 20090209
  Receipt Date: 20090209
  Transmission Date: 20090719
  Serious: Yes (Other)
  Sender: FDA-Public Use
  Company Number: None

PATIENT
  Sex: Female
  Weight: 83.9154 kg

DRUGS (1)
  1. ENBREL [Suspect]
     Indication: OSTEOARTHRITIS
     Dosage: WEEKLY
     Dates: start: 20080201, end: 20080301

REACTIONS (2)
  - ASPERGILLOSIS [None]
  - SINUSITIS [None]
